FAERS Safety Report 20473043 (Version 4)
Quarter: 2022Q2

REPORT INFORMATION
  Report Type: Spontaneous
  Country: GB (occurrence: GB)
  Receive Date: 20220215
  Receipt Date: 20220520
  Transmission Date: 20220721
  Serious: Yes (Other)
  Sender: FDA-Public Use
  Company Number: GB-BRISTOL-MYERS SQUIBB COMPANY-BMS-2022-022089

PATIENT
  Age: 5 Year
  Sex: Female
  Weight: 18.9 kg

DRUGS (6)
  1. OPDIVO [Suspect]
     Active Substance: NIVOLUMAB
     Indication: Ependymoma
     Dosage: UNK UNK, Q2WK
     Route: 042
     Dates: start: 202106
  2. MEROPENEM [Concomitant]
     Active Substance: MEROPENEM
     Indication: CNS ventriculitis
     Dosage: UNK
     Route: 065
  3. MEROPENEM [Concomitant]
     Active Substance: MEROPENEM
     Indication: Pyrexia
     Dosage: 6 WEEKS
     Route: 065
  4. MEROPENEM [Concomitant]
     Active Substance: MEROPENEM
     Indication: Meningitis
  5. VANCOMYCIN [Concomitant]
     Active Substance: VANCOMYCIN
     Indication: Meningitis
     Dosage: 6 WEEKS
     Route: 065
  6. VANCOMYCIN [Concomitant]
     Active Substance: VANCOMYCIN
     Indication: Pyrexia

REACTIONS (3)
  - Malignant neoplasm progression [Recovering/Resolving]
  - Spinal cord compression [Recovering/Resolving]
  - Intentional product use issue [Unknown]
